FAERS Safety Report 6765658-0 (Version None)
Quarter: 2010Q2

REPORT INFORMATION
  Report Type: 
  Country: None (occurrence: None)
  Receive Date: 20100611
  Receipt Date: 20100609
  Transmission Date: 20101027
  Serious: Yes (Life-Threatening)
  Sender: FDA-Public Use
  Company Number: FR-ASTRAZENECA-2010SE26885

PATIENT
  Age: 55 Year
  Sex: Female

DRUGS (4)
  1. DIPRIVAN [Suspect]
     Dosage: SINGLE ADMINISTRATION
     Route: 042
     Dates: start: 20100510
  2. SUFENTA PRESERVATIVE FREE [Suspect]
     Dosage: SINGLE ADMINISTRATION
     Route: 042
     Dates: start: 20100510
  3. TRACRIUM [Suspect]
     Dosage: SINGLE ADMINISTRATION
     Route: 042
     Dates: start: 20100510
  4. KETALAR [Concomitant]
     Route: 042

REACTIONS (1)
  - ANAPHYLACTIC SHOCK [None]
